FAERS Safety Report 13940543 (Version 1)
Quarter: 2017Q3

REPORT INFORMATION
  Report Type: Spontaneous
  Country: US (occurrence: US)
  Receive Date: 20170906
  Receipt Date: 20170906
  Transmission Date: 20171127
  Serious: No
  Sender: FDA-Public Use
  Company Number: US-GLAXOSMITHKLINE-US2017GSK137078

PATIENT
  Age: 69 Year
  Sex: Female

DRUGS (1)
  1. ADVAIR HFA [Suspect]
     Active Substance: FLUTICASONE PROPIONATE\SALMETEROL XINAFOATE
     Indication: PRODUCT USED FOR UNKNOWN INDICATION
     Dosage: 2 PUFF(S), BID

REACTIONS (6)
  - Skin atrophy [Unknown]
  - Contusion [Unknown]
  - Dry skin [Unknown]
  - Skin haemorrhage [Unknown]
  - Skin disorder [Unknown]
  - Skin injury [Unknown]

NARRATIVE: CASE EVENT DATE: 2015
